FAERS Safety Report 8781109 (Version 1)
Quarter: 2012Q4

REPORT INFORMATION
  Report Type: 
  Country: US (occurrence: US)
  Receive Date: 20120913
  Receipt Date: 20120913
  Transmission Date: 20130627
  Serious: No
  Sender: FDA-Public Use
  Company Number: US-PFIZER INC-2012221087

PATIENT
  Age: 11 Year
  Sex: Male

DRUGS (2)
  1. FLUCONAZOLE [Suspect]
     Dosage: UNK
     Route: 048
  2. COUMADIN [Interacting]
     Dosage: UNK

REACTIONS (3)
  - Potentiating drug interaction [Unknown]
  - Catheter site haemorrhage [Unknown]
  - Incorrect dose administered [Unknown]
